FAERS Safety Report 6565062-4 (Version None)
Quarter: 2010Q1

REPORT INFORMATION
  Report Type: 
  Country: None (occurrence: None)
  Receive Date: 20100201
  Receipt Date: 20100118
  Transmission Date: 20100710
  Serious: Yes (Other)
  Sender: FDA-Public Use
  Company Number: US-BAYER-201010707BCC

PATIENT
  Sex: Male

DRUGS (1)
  1. ALKA-SELTZER PLUS EFFERVESCENT COLD [Suspect]
     Indication: NASOPHARYNGITIS
     Route: 048

REACTIONS (2)
  - COMA [None]
  - NASOPHARYNGITIS [None]
